FAERS Safety Report 9007837 (Version 1)
Quarter: 2013Q1

REPORT INFORMATION
  Report Type: Spontaneous
  Country: US (occurrence: US)
  Receive Date: 20130111
  Receipt Date: 20130111
  Transmission Date: 20140127
  Serious: Yes (Other)
  Sender: FDA-Public Use
  Company Number: US-MERCK-1301USA003434

PATIENT
  Age: 65 Year
  Sex: Female

DRUGS (5)
  1. MONTELUKAST SODIUM [Suspect]
     Indication: BLOOD PRESSURE
     Route: 048
  2. SALBUTAMOL [Suspect]
     Indication: ASTHMA
     Route: 055
  3. SERETIDE [Suspect]
     Indication: HIATUS HERNIA
     Route: 055
  4. OMEPRAZOLE [Suspect]
     Route: 048
  5. AMLODIPINE [Suspect]
     Route: 048

REACTIONS (4)
  - Increased upper airway secretion [Unknown]
  - Dyspnoea [Unknown]
  - Cough [Unknown]
  - Asthma [Unknown]
